FAERS Safety Report 21633167 (Version 1)
Quarter: 2022Q4

REPORT INFORMATION
  Report Type: Spontaneous
  Country: US (occurrence: None)
  Receive Date: 20221122
  Receipt Date: 20221122
  Transmission Date: 20230112
  Serious: Yes (Hospitalization)
  Sender: FDA-Public Use
  Company Number: None

PATIENT
  Sex: Male

DRUGS (17)
  1. HUMIRA [Suspect]
     Active Substance: ADALIMUMAB
     Indication: Ankylosing spondylitis
     Dosage: OTHER QUANTITY : 40MG/0.4ML ;?
     Route: 058
     Dates: start: 20220303
  2. ALBUTEROL [Concomitant]
  3. AMLODIPINE [Concomitant]
     Active Substance: AMLODIPINE BESYLATE
  4. ATORVASTATIN [Concomitant]
     Active Substance: ATORVASTATIN
  5. CLOPIDOGREL [Concomitant]
     Active Substance: CLOPIDOGREL BISULFATE
  6. ELIQUIS [Concomitant]
     Active Substance: APIXABAN
  7. EZETIMIBE [Concomitant]
     Active Substance: EZETIMIBE
  8. FLUOXETINE [Concomitant]
     Active Substance: FLUOXETINE HYDROCHLORIDE
  9. IPRATROPIUM [Concomitant]
  10. LISINOPRIL [Concomitant]
     Active Substance: LISINOPRIL
  11. METFORMIN [Concomitant]
     Active Substance: METFORMIN HYDROCHLORIDE
  12. METOPROL TAR [Concomitant]
  13. MONTELUKAST [Concomitant]
  14. NOVOLIN N [Concomitant]
     Active Substance: INSULIN HUMAN
  15. OMEPRAZOLE [Concomitant]
     Active Substance: OMEPRAZOLE
  16. PREDNISONE [Concomitant]
     Active Substance: PREDNISONE
  17. WARFARIN [Concomitant]
     Active Substance: WARFARIN

REACTIONS (4)
  - Condition aggravated [None]
  - Pain [None]
  - Loss of personal independence in daily activities [None]
  - Therapy interrupted [None]
